FAERS Safety Report 8014024-9 (Version None)
Quarter: 2011Q4

REPORT INFORMATION
  Report Type: 
  Country: None (occurrence: None)
  Receive Date: 20111229
  Receipt Date: 20111221
  Transmission Date: 20120403
  Serious: Yes (Death, Hospitalization)
  Sender: FDA-Public Use
  Company Number: GR-ROCHE-802837

PATIENT
  Age: 35 Year
  Sex: Male
  Weight: 78 kg

DRUGS (1)
  1. VEMURAFENIB [Suspect]
     Indication: METASTATIC MALIGNANT MELANOMA
     Route: 048
     Dates: start: 20110720, end: 20110909

REACTIONS (11)
  - METASTASES TO LIVER [None]
  - PHOTOSENSITIVITY REACTION [None]
  - NEOPLASM PROGRESSION [None]
  - DEHYDRATION [None]
  - GENERAL PHYSICAL HEALTH DETERIORATION [None]
  - DERMATITIS EXFOLIATIVE [None]
  - METASTASES TO CENTRAL NERVOUS SYSTEM [None]
  - METASTASES TO LUNG [None]
  - MULTI-ORGAN FAILURE [None]
  - TENDERNESS [None]
  - LEUKOCYTOSIS [None]
